FAERS Safety Report 25219216 (Version 2)
Quarter: 2025Q2

REPORT INFORMATION
  Report Type: Spontaneous
  Country: US (occurrence: US)
  Receive Date: 20250421
  Receipt Date: 20250511
  Transmission Date: 20250716
  Serious: No
  Sender: BOEHRINGER INGELHEIM
  Company Number: US-Komodo Health-a23aa0000074KsAAAU

PATIENT
  Age: 53 Year
  Sex: Male

DRUGS (2)
  1. JARDIANCE [Suspect]
     Active Substance: EMPAGLIFLOZIN
     Indication: Type 2 diabetes mellitus
  2. JARDIANCE [Suspect]
     Active Substance: EMPAGLIFLOZIN
     Indication: Renal impairment

REACTIONS (4)
  - Diarrhoea [Recovering/Resolving]
  - Lethargy [Recovering/Resolving]
  - Malaise [Recovering/Resolving]
  - Parosmia [Unknown]

NARRATIVE: CASE EVENT DATE: 20250401
